FAERS Safety Report 18322528 (Version 1)
Quarter: 2020Q3

REPORT INFORMATION
  Report Type: Spontaneous
  Country: US (occurrence: US)
  Receive Date: 20200925
  Receipt Date: 20200925
  Transmission Date: 20201103
  Serious: Yes (Hospitalization)
  Sender: FDA-Public Use
  Company Number: None

PATIENT
  Age: 63 Year
  Sex: Male
  Weight: 97.4 kg

DRUGS (4)
  1. LEUCOVORIN CALCIUM. [Suspect]
     Active Substance: LEUCOVORIN CALCIUM
  2. NIVOLUMAB [Suspect]
     Active Substance: NIVOLUMAB
  3. FLUOROURACIL. [Suspect]
     Active Substance: FLUOROURACIL
  4. OXALIPLATIN. [Suspect]
     Active Substance: OXALIPLATIN

REACTIONS (3)
  - Confusional state [None]
  - Pneumonia [None]
  - Sepsis [None]

NARRATIVE: CASE EVENT DATE: 20200924
